FAERS Safety Report 8124650-4 (Version None)
Quarter: 2012Q1

REPORT INFORMATION
  Report Type: 
  Country: None (occurrence: None)
  Receive Date: 20120209
  Receipt Date: 20120209
  Transmission Date: 20120608
  Serious: Yes (Other)
  Sender: FDA-Public Use
  Company Number: None

PATIENT
  Age: 71 Year
  Sex: Female
  Weight: 62.595 kg

DRUGS (1)
  1. PROLIA [Suspect]
     Indication: OSTEOPOROSIS
     Dosage: 60.0 MG
     Route: 058

REACTIONS (3)
  - HYPERSENSITIVITY [None]
  - PAIN IN EXTREMITY [None]
  - PHARYNGEAL OEDEMA [None]
